FAERS Safety Report 6298172-X (Version None)
Quarter: 2009Q3

REPORT INFORMATION
  Report Type: 
  Country: None (occurrence: None)
  Receive Date: 20090805
  Receipt Date: 20090727
  Transmission Date: 20100115
  Serious: Yes (Death, Hospitalization)
  Sender: FDA-Public Use
  Company Number: US-AVENTIS-200914464US

PATIENT
  Sex: Female

DRUGS (14)
  1. ARAVA [Suspect]
     Indication: RHEUMATOID ARTHRITIS
     Route: 048
     Dates: start: 20061024, end: 20061105
  2. HUMIRA [Suspect]
     Indication: RHEUMATOID ARTHRITIS
     Dosage: DOSE: 1 INJECTION
     Route: 051
     Dates: start: 20041008, end: 20051213
  3. HUMIRA [Suspect]
     Dosage: DOSE: 1 INJECTION
     Route: 051
     Dates: start: 20051213, end: 20061110
  4. MOBIC [Suspect]
     Indication: ARTHRITIS
     Route: 048
     Dates: start: 20050607, end: 20061101
  5. PREVACID [Suspect]
     Route: 048
     Dates: start: 20050903, end: 20061101
  6. QUESTRAN [Concomitant]
     Dosage: DOSE: UNK
  7. PROTONIX [Concomitant]
     Dosage: DOSE: UNK
  8. DILAUDID [Concomitant]
     Dosage: DOSE: UNK
  9. PROTON PUMP INHIBITORS [Concomitant]
     Dosage: DOSE: UNK
  10. PREDNISONE [Concomitant]
     Dates: start: 20060101, end: 20060101
  11. ZOFRAN [Concomitant]
     Dates: start: 20061113
  12. COLACE [Concomitant]
     Dosage: DOSE: UNK
  13. MULTI-VITAMINS [Concomitant]
     Dosage: DOSE: UNK
  14. CLONIDINE [Concomitant]
     Dosage: DOSE: UNK
     Dates: start: 20060101

REACTIONS (35)
  - ABDOMINAL PAIN [None]
  - ACUTE INTERSTITIAL PNEUMONITIS [None]
  - ASTHENIA [None]
  - ATELECTASIS [None]
  - BACK PAIN [None]
  - CHILLS [None]
  - CHROMATURIA [None]
  - COAGULOPATHY [None]
  - COUGH [None]
  - DYSPNOEA [None]
  - DYSURIA [None]
  - EAR PAIN [None]
  - HAEMORRHAGE INTRACRANIAL [None]
  - HEADACHE [None]
  - HEPATIC ENCEPHALOPATHY [None]
  - HEPATIC FAILURE [None]
  - HYPERAMMONAEMIA [None]
  - HYPOXIA [None]
  - JAUNDICE [None]
  - JOINT RANGE OF MOTION DECREASED [None]
  - LIVER FUNCTION TEST ABNORMAL [None]
  - MENTAL STATUS CHANGES [None]
  - MYALGIA [None]
  - NAUSEA [None]
  - NECK PAIN [None]
  - NIGHT SWEATS [None]
  - OROPHARYNGEAL PAIN [None]
  - PALLOR [None]
  - POLLAKIURIA [None]
  - PULMONARY EMBOLISM [None]
  - PULMONARY OEDEMA [None]
  - PYREXIA [None]
  - RASH MACULO-PAPULAR [None]
  - URTICARIA [None]
  - VOMITING [None]
